FAERS Safety Report 5812429-5 (Version None)
Quarter: 2008Q3

REPORT INFORMATION
  Report Type: 
  Country: None (occurrence: None)
  Receive Date: 20080711
  Receipt Date: 20080702
  Transmission Date: 20090109
  Serious: Yes (Death)
  Sender: FDA-Public Use
  Company Number: GXKR2008TW06117

PATIENT
  Age: 74 Year
  Sex: Male

DRUGS (3)
  1. CEFTRIAXONE [Suspect]
     Indication: PERITONITIS BACTERIAL
     Dosage: INTRAPERITONEAL
     Route: 033
  2. VANCOMYCIN HYDROCHLORIDE [Suspect]
     Indication: PNEUMONIA
     Dosage: INTRAVENOUS
     Route: 042
  3. CIPROFLOXACIN (NGX) (CIPROFLOXACIN) [Suspect]
     Indication: PNEUMONIA
     Dosage: INTRAVENOUS
     Route: 042

REACTIONS (11)
  - ABSCESS FUNGAL [None]
  - CANDIDIASIS [None]
  - CATHETER RELATED INFECTION [None]
  - ENTEROBACTER PNEUMONIA [None]
  - FUNGAL PERITONITIS [None]
  - GASTRIC DISORDER [None]
  - PANCREAS INFECTION [None]
  - PNEUMONIA ESCHERICHIA [None]
  - PNEUMONIA STAPHYLOCOCCAL [None]
  - SEPTIC SHOCK [None]
  - THERAPEUTIC RESPONSE DECREASED [None]
